FAERS Safety Report 8173857-9 (Version None)
Quarter: 2012Q1

REPORT INFORMATION
  Report Type: 
  Country: None (occurrence: None)
  Receive Date: 20120221
  Receipt Date: 20110131
  Transmission Date: 20120608
  Serious: Yes (Other)
  Sender: FDA-Public Use
  Company Number: 2011-0010-EUR

PATIENT
  Age: 63 Year
  Sex: Female
  Weight: 68 kg

DRUGS (9)
  1. METFORMIN HCL [Concomitant]
  2. BENZOCAINE (BENZOCAINE) [Concomitant]
  3. FISH OIL (FISH OIL) [Concomitant]
  4. CALCIUM CARBONATE [Concomitant]
  5. ORAQIX (LIDOCAINE PRILOCAINE) PRE-FILLED SYRINGES, 2.5% [Suspect]
     Indication: DENTAL CARE
     Dosage: (1 ONCE)
     Dates: start: 20110127, end: 20110127
  6. MULTIVITAMINS (ASCORBIC ACID, ERGOCALCIFEROL, FOLIC ACID, NICOTINAMIDE [Concomitant]
  7. PLETAL [Concomitant]
  8. LISINOPRIL [Concomitant]
  9. VITAMIN D [Concomitant]

REACTIONS (2)
  - SWOLLEN TONGUE [None]
  - LIP SWELLING [None]
